FAERS Safety Report 7773002-5 (Version None)
Quarter: 2011Q3

REPORT INFORMATION
  Report Type: 
  Country: None (occurrence: None)
  Receive Date: 20110922
  Receipt Date: 20110708
  Transmission Date: 20111222
  Serious: No
  Sender: FDA-Public Use
  Company Number: US-ASTRAZENECA-2011SE40779

PATIENT
  Age: 51 Year
  Sex: Female
  Weight: 69.9 kg

DRUGS (8)
  1. SEROQUEL XR [Suspect]
     Indication: DEPRESSION
     Route: 048
     Dates: start: 20070101, end: 20100101
  2. SEROQUEL XR [Suspect]
     Indication: BIPOLAR DISORDER
     Route: 048
     Dates: start: 20070101, end: 20100101
  3. ATIVAN [Concomitant]
     Indication: DEPRESSION
     Dosage: AS REQUIRED
  4. SEROQUEL XR [Suspect]
     Route: 048
     Dates: start: 20100101
  5. SEROQUEL XR [Suspect]
     Route: 048
     Dates: start: 20100101
  6. TYLENOL-500 [Concomitant]
     Dosage: PRN
  7. SEROQUEL XR [Suspect]
     Route: 048
  8. SEROQUEL XR [Suspect]
     Route: 048

REACTIONS (5)
  - POST-TRAUMATIC STRESS DISORDER [None]
  - THERAPEUTIC RESPONSE UNEXPECTED [None]
  - DEPRESSION [None]
  - INCORRECT DOSE ADMINISTERED [None]
  - DRUG INEFFECTIVE [None]
